FAERS Safety Report 8452177-9 (Version None)
Quarter: 2012Q2

REPORT INFORMATION
  Report Type: 
  Country: None (occurrence: None)
  Receive Date: 20120620
  Receipt Date: 20120402
  Transmission Date: 20120825
  Serious: No
  Sender: FDA-Public Use
  Company Number: US-VERTEX PHARMACEUTICALS INC.-AE-2012-004703

PATIENT
  Sex: Female
  Weight: 108.96 kg

DRUGS (7)
  1. INCIVEK [Suspect]
     Indication: HEPATITIS C
     Route: 048
     Dates: start: 20120323, end: 20120325
  2. RIBAVIRIN [Concomitant]
     Indication: HEPATITIS C
     Route: 048
     Dates: start: 20120323, end: 20120325
  3. PEGASYS [Concomitant]
     Indication: HEPATITIS C
     Dates: start: 20120323, end: 20120325
  4. LISINOPRIL [Concomitant]
     Route: 048
  5. PAXIL [Concomitant]
     Route: 048
  6. LANTUS [Concomitant]
  7. METFORMIN HCL [Concomitant]

REACTIONS (1)
  - PLATELET COUNT DECREASED [None]
